FAERS Safety Report 26182771 (Version 1)
Quarter: 2025Q4

REPORT INFORMATION
  Report Type: Spontaneous
  Country: JP (occurrence: JP)
  Receive Date: 20251221
  Receipt Date: 20251221
  Transmission Date: 20260117
  Serious: Yes (Death, Disabling)
  Sender: AMGEN
  Company Number: JP-AMGEN-JPNSP2025250820

PATIENT

DRUGS (1)
  1. IMDELLTRA [Suspect]
     Active Substance: TARLATAMAB-DLLE
     Indication: Small cell lung cancer recurrent
     Dosage: 1 MILLIGRAM, DRIP INFUSION
     Route: 040
     Dates: start: 20251209

REACTIONS (3)
  - Liver disorder [Not Recovered/Not Resolved]
  - Disease progression [Fatal]
  - Acute kidney injury [Not Recovered/Not Resolved]

NARRATIVE: CASE EVENT DATE: 20251210
